FAERS Safety Report 5883887-5 (Version None)
Quarter: 2008Q3

REPORT INFORMATION
  Report Type: 
  Country: None (occurrence: None)
  Receive Date: 20080915
  Receipt Date: 20080902
  Transmission Date: 20090109
  Serious: Yes (Hospitalization)
  Sender: FDA-Public Use
  Company Number: FI-ELI_LILLY_AND_COMPANY-FI200804000125

PATIENT
  Sex: Male

DRUGS (15)
  1. GEMZAR [Suspect]
     Indication: PANCREATIC CARCINOMA
     Dosage: 2000 MG, UNK
     Route: 042
     Dates: start: 20071105
  2. GEMZAR [Interacting]
     Dosage: 2000 MG, UNK
     Route: 042
     Dates: start: 20071203
  3. GEMZAR [Interacting]
     Dosage: 1500 MG, UNK
     Route: 042
     Dates: start: 20071217
  4. GEMZAR [Interacting]
     Dosage: 1500 MG, UNK
     Route: 042
     Dates: start: 20080104
  5. GEMZAR [Interacting]
     Dosage: 1500 MG, UNK
     Route: 042
     Dates: start: 20080116
  6. GEMZAR [Interacting]
     Dosage: 1500 MG, UNK
     Route: 042
     Dates: start: 20080130
  7. GEMZAR [Interacting]
     Dosage: 1500 MG, UNK
     Route: 042
     Dates: start: 20080206
  8. GEMZAR [Interacting]
     Dosage: 1500 MG, UNK
     Route: 042
     Dates: start: 20080220
  9. GEMZAR [Interacting]
     Dosage: 1100 MG, UNK
     Route: 042
     Dates: start: 20080227
  10. GEMZAR [Interacting]
     Dosage: 1100 MG, UNK
     Route: 042
     Dates: start: 20080305, end: 20080305
  11. LIPITOR [Interacting]
     Indication: METABOLIC SYNDROME
     Dosage: UNK, UNKNOWN
     Route: 048
     Dates: end: 20080301
  12. SIMVASTATIN [Concomitant]
     Indication: METABOLIC SYNDROME
     Dosage: UNK, UNKNOWN
     Route: 065
     Dates: start: 20080313
  13. IDOFORM [Concomitant]
     Indication: METABOLIC SYNDROME
     Dosage: UNK, UNKNOWN
     Route: 048
  14. ORLOC [Concomitant]
     Indication: METABOLIC SYNDROME
     Dosage: UNK, UNKNOWN
     Route: 048
  15. KEFEXIN [Concomitant]
     Indication: PROPHYLAXIS
     Dosage: UNK, UNKNOWN
     Route: 048

REACTIONS (3)
  - OEDEMA PERIPHERAL [None]
  - RHABDOMYOLYSIS [None]
  - WEIGHT INCREASED [None]
